FAERS Safety Report 9815496 (Version 1)
Quarter: 2014Q1

REPORT INFORMATION
  Report Type: Spontaneous
  Country: US (occurrence: US)
  Receive Date: 20140114
  Receipt Date: 20140114
  Transmission Date: 20141002
  Serious: No
  Sender: FDA-Public Use
  Company Number: US-PFIZER INC-2014006999

PATIENT
  Age: 69 Year
  Sex: Female

DRUGS (11)
  1. CEPHALEXIN [Suspect]
     Dosage: UNK
  2. PROZAC [Suspect]
     Dosage: UNK
  3. REGULAR INSULIN [Suspect]
     Dosage: UNK
  4. NORTRIPTYLINE [Suspect]
     Dosage: UNK
  5. ZOCOR [Suspect]
     Dosage: UNK
  6. BACTRIM [Suspect]
     Dosage: UNK
  7. ALPRAZOLAM [Suspect]
     Dosage: UNK
  8. XANAX [Suspect]
     Dosage: UNK
  9. ZOLOFT [Suspect]
     Dosage: UNK
  10. TRIMETHOPRIM [Suspect]
     Dosage: UNK
  11. PACERONE [Suspect]
     Dosage: UNK

REACTIONS (1)
  - Drug hypersensitivity [Unknown]
